FAERS Safety Report 20412566 (Version 11)
Quarter: 2022Q3

REPORT INFORMATION
  Report Type: Spontaneous
  Country: CA (occurrence: CA)
  Receive Date: 20220201
  Receipt Date: 20220809
  Transmission Date: 20221027
  Serious: Yes (Other)
  Sender: FDA-Public Use
  Company Number: CA-PFIZER INC-202101374902

PATIENT
  Age: 61 Year
  Sex: Female
  Weight: 83 kg

DRUGS (8)
  1. RUXIENCE [Suspect]
     Active Substance: RITUXIMAB-PVVR
     Indication: Rheumatoid arthritis
     Dosage: 1000 MG, (DAY 1 AND DAY 15)
     Route: 042
     Dates: start: 20211202, end: 20211216
  2. RUXIENCE [Suspect]
     Active Substance: RITUXIMAB-PVVR
     Dosage: 1000 MG, (DAY 1 AND DAY 15)
     Route: 042
     Dates: start: 20211216
  3. RUXIENCE [Suspect]
     Active Substance: RITUXIMAB-PVVR
     Dosage: 1000 MG, (DAY 1 AND DAY 15)
     Route: 042
     Dates: start: 20220617
  4. DIMENHYDRINATE [Concomitant]
     Active Substance: DIMENHYDRINATE
     Indication: Premedication
     Dosage: UNK
     Dates: start: 20220617, end: 20220617
  5. NABUMETONE [Concomitant]
     Active Substance: NABUMETONE
     Dosage: 1 DF
     Route: 065
  6. PREDNISONE [Concomitant]
     Active Substance: PREDNISONE
     Dosage: 1 DF
     Route: 065
  7. RAMIPRIL [Concomitant]
     Active Substance: RAMIPRIL
     Indication: Blood pressure abnormal
     Dosage: 2.5 MG, DAILY (PER DAY)
     Route: 065
  8. XELJANZ [Concomitant]
     Active Substance: TOFACITINIB CITRATE
     Dosage: 1 DF PLEASE REFER TO PATIENT^S XELJANZ FILE-XLJ12978 FOR DOSAGE INFORMATION. STOPPED
     Route: 048
     Dates: start: 20211101, end: 20211101

REACTIONS (11)
  - Cataract [Unknown]
  - Lower respiratory tract infection [Not Recovered/Not Resolved]
  - Therapeutic product effect incomplete [Unknown]
  - Off label use [Unknown]
  - Off label use [Unknown]
  - Intentional product use issue [Unknown]
  - Product use issue [Unknown]
  - Fatigue [Recovered/Resolved]
  - Nausea [Recovered/Resolved]
  - Malaise [Not Recovered/Not Resolved]
  - Migraine [Unknown]

NARRATIVE: CASE EVENT DATE: 20211201
